FAERS Safety Report 16790230 (Version 2)
Quarter: 2019Q3

REPORT INFORMATION
  Report Type: Spontaneous
  Country: US (occurrence: US)
  Receive Date: 20190910
  Receipt Date: 20190910
  Transmission Date: 20191005
  Serious: Yes (Other)
  Sender: FDA-Public Use
  Company Number: PHEH2019US036254

PATIENT
  Age: 25 Year
  Sex: Male

DRUGS (10)
  1. DASATINIB. [Suspect]
     Active Substance: DASATINIB
     Indication: B PRECURSOR TYPE ACUTE LEUKAEMIA
     Dosage: UNK
     Route: 065
  2. TACROLIMUS. [Suspect]
     Active Substance: TACROLIMUS
     Indication: PROPHYLAXIS
  3. CYCLOPHOSPHAMIDE. [Suspect]
     Active Substance: CYCLOPHOSPHAMIDE
     Indication: B PRECURSOR TYPE ACUTE LEUKAEMIA
     Dosage: UNK
     Route: 065
  4. TACROLIMUS. [Suspect]
     Active Substance: TACROLIMUS
     Indication: B PRECURSOR TYPE ACUTE LEUKAEMIA
     Dosage: UNK
     Route: 065
  5. CYTARABINE. [Suspect]
     Active Substance: CYTARABINE
     Indication: B PRECURSOR TYPE ACUTE LEUKAEMIA
     Dosage: UNK
     Route: 065
  6. MYCOPHENOLATE MOFETIL. [Suspect]
     Active Substance: MYCOPHENOLATE MOFETIL
     Indication: B PRECURSOR TYPE ACUTE LEUKAEMIA
     Dosage: UNK
     Route: 065
  7. METHOTREXATE. [Suspect]
     Active Substance: METHOTREXATE
     Indication: B PRECURSOR TYPE ACUTE LEUKAEMIA
     Dosage: UNK
     Route: 065
  8. MYCOPHENOLATE MOFETIL. [Suspect]
     Active Substance: MYCOPHENOLATE MOFETIL
     Indication: PROPHYLAXIS
  9. IMATINIB. [Suspect]
     Active Substance: IMATINIB MESYLATE
     Indication: B PRECURSOR TYPE ACUTE LEUKAEMIA
     Dosage: UNK
     Route: 065
  10. CYCLOPHOSPHAMIDE. [Suspect]
     Active Substance: CYCLOPHOSPHAMIDE
     Indication: PROPHYLAXIS

REACTIONS (19)
  - Papilloedema [Unknown]
  - Cytomegalovirus infection [Recovered/Resolved]
  - Malignant neoplasm progression [Unknown]
  - Brain oedema [Unknown]
  - Graft versus host disease [Recovered/Resolved]
  - Dysphagia [Unknown]
  - B precursor type acute leukaemia [Unknown]
  - Tremor [Unknown]
  - Dysarthria [Unknown]
  - Headache [Unknown]
  - Blindness unilateral [Unknown]
  - Central nervous system neoplasm [Unknown]
  - Facial paralysis [Unknown]
  - CSF culture positive [Unknown]
  - Cranial nerve disorder [Unknown]
  - Toxicity to various agents [Unknown]
  - Philadelphia chromosome positive [Unknown]
  - Minimal residual disease [Unknown]
  - BK virus infection [Recovered/Resolved]

NARRATIVE: CASE EVENT DATE: 201312
